FAERS Safety Report 9096197 (Version 1)
Quarter: 2013Q1

REPORT INFORMATION
  Report Type: Spontaneous
  Country: DE (occurrence: DE)
  Receive Date: 20130207
  Receipt Date: 20130207
  Transmission Date: 20140127
  Serious: Yes (Disabling)
  Sender: FDA-Public Use
  Company Number: DE-ASTRAZENECA-2013SE06770

PATIENT
  Age: 78 Year
  Sex: Male

DRUGS (2)
  1. BICALUTAMIDE [Suspect]
     Route: 048
     Dates: start: 201212
  2. ZOLADEX [Suspect]
     Dosage: 1-3 MONTHS
     Route: 058
     Dates: start: 2004

REACTIONS (2)
  - Neuralgia [Not Recovered/Not Resolved]
  - Nerve injury [Not Recovered/Not Resolved]
